FAERS Safety Report 6274165-3 (Version None)
Quarter: 2009Q3

REPORT INFORMATION
  Report Type: 
  Country: None (occurrence: None)
  Receive Date: 20090720
  Receipt Date: 20090708
  Transmission Date: 20100115
  Serious: Yes (Other)
  Sender: FDA-Public Use
  Company Number: US-PFIZER INC-2009211605

PATIENT
  Sex: Male
  Weight: 83.447 kg

DRUGS (28)
  1. LYRICA [Suspect]
     Indication: FIBROMYALGIA
     Dosage: FREQUENCY: 3X/DAY, EVERY DAY;
     Dates: start: 20070801, end: 20090401
  2. LYRICA [Suspect]
     Indication: PAIN IN EXTREMITY
     Dosage: 150 MG, 2X/DAY
     Dates: start: 20070101, end: 20090414
  3. LYRICA [Suspect]
     Indication: BACK DISORDER
  4. LYRICA [Suspect]
     Indication: WEIGHT INCREASED
  5. RANITIDINE [Suspect]
     Indication: GASTROOESOPHAGEAL REFLUX DISEASE
     Dosage: 150 MG, 2X/DAY
  6. ANUCORT-HC [Suspect]
     Indication: HAEMORRHOIDS
     Dosage: 25 MG, 1-2 TIMES PER DAY
  7. VITAMIN B-12 [Suspect]
     Indication: VITAMIN SUPPLEMENTATION
     Dosage: 1 MG, 1X/DAY
  8. PHENYLALANINE [Suspect]
     Indication: PENILE PAIN
     Dosage: 500 MG, 3X/DAY
  9. OXYCONTIN [Concomitant]
     Indication: PAIN MANAGEMENT
     Dosage: 20 MG, 2X/DAY
  10. OXYCODONE [Concomitant]
     Dosage: UNK
  11. XANAX [Concomitant]
     Indication: SLEEP DISORDER
     Dosage: 0.5 MG AT LUNCH AND 1 MG AT BED
  12. AMBIEN [Concomitant]
     Indication: INSOMNIA
     Dosage: 10 MG, UNK
  13. FEXOFENADINE HYDROCHLORIDE [Concomitant]
     Indication: POSTNASAL DRIP
     Dosage: 180 MG, UNK
  14. NYSTATIN [Concomitant]
     Indication: CANDIDIASIS
     Dosage: 3 TEASPOON
  15. THYROID TAB [Concomitant]
     Indication: HYPOTHYROIDISM
     Dosage: 1.5 G, UNK
  16. IODINE [Concomitant]
     Indication: THYROID THERAPY
     Dosage: 1 CAPSULE
  17. VITAMIN B COMPLEX CAP [Concomitant]
     Indication: PAIN IN EXTREMITY
     Dosage: 1 TABLET
  18. MULTI-VITAMINS [Concomitant]
     Dosage: 1 TABLET AT BREAKFAST
  19. ESTER-C [Concomitant]
     Dosage: 1000 MG
  20. FISH OIL [Concomitant]
     Dosage: 1000 MG, 3X/DAY
  21. CHONDROITIN/GLUCOSAMINE [Concomitant]
     Indication: ARTHRITIS
     Dosage: 750MG/600MG
  22. GINKGO BILOBA [Concomitant]
     Dosage: 60 MG, UNK
  23. EDETIC ACID [Concomitant]
     Dosage: 375 MG, UNK
  24. CALCIUM MAGNESIUM ZINC [Concomitant]
     Dosage: 500/600/5 MG
  25. MELATONIN [Concomitant]
     Dosage: 3 MG, UNK
  26. BIOTIN [Concomitant]
     Indication: ALOPECIA
     Dosage: 1000 MCG
  27. VITAMIN D3 [Concomitant]
     Dosage: 2500 IU
  28. OXYCODONE HYDROCHLORIDE W/PARACETAMOL [Concomitant]
     Indication: BREAKTHROUGH PAIN
     Dosage: 10 MG, AS NEEDED

REACTIONS (24)
  - ASTHENIA [None]
  - BARRETT'S OESOPHAGUS [None]
  - BLOOD GLUCOSE INCREASED [None]
  - BLOOD THYROID STIMULATING HORMONE DECREASED [None]
  - CONDITION AGGRAVATED [None]
  - DECREASED APPETITE [None]
  - ENDOCRINE DISORDER [None]
  - FATIGUE [None]
  - FIBROMYALGIA [None]
  - HEADACHE [None]
  - HIGH DENSITY LIPOPROTEIN DECREASED [None]
  - LOW DENSITY LIPOPROTEIN INCREASED [None]
  - MEMORY IMPAIRMENT [None]
  - MUSCLE SPASMS [None]
  - MYALGIA [None]
  - NERVE INJURY [None]
  - NEUROPATHY PERIPHERAL [None]
  - PAIN IN EXTREMITY [None]
  - PENILE PAIN [None]
  - POST PROCEDURAL COMPLICATION [None]
  - SPINAL FUSION SURGERY [None]
  - SPINAL LAMINECTOMY [None]
  - TRI-IODOTHYRONINE INCREASED [None]
  - WEIGHT INCREASED [None]
